FAERS Safety Report 7016704-0 (Version None)
Quarter: 2010Q3

REPORT INFORMATION
  Report Type: 
  Country: None (occurrence: None)
  Receive Date: 20100927
  Receipt Date: 20100917
  Transmission Date: 20110219
  Serious: Yes (Other)
  Sender: FDA-Public Use
  Company Number: JP-ABBOTT-10P-087-0671594-00

PATIENT
  Age: 54 Year
  Sex: Female

DRUGS (1)
  1. KLARICID TAB [Suspect]
     Indication: PRODUCT USED FOR UNKNOWN INDICATION
     Dates: start: 20090601, end: 20090901

REACTIONS (1)
  - PANCYTOPENIA [None]
